FAERS Safety Report 8553846-2 (Version None)
Quarter: 2012Q3

REPORT INFORMATION
  Report Type: 
  Country: None (occurrence: None)
  Receive Date: 20120731
  Receipt Date: 20120727
  Transmission Date: 20120928
  Serious: Yes (Death, Hospitalization, Other)
  Sender: FDA-Public Use
  Company Number: GB-ABBOTT-12P-167-0939556-00

PATIENT
  Age: 40 Year
  Sex: Male
  Weight: 104 kg

DRUGS (14)
  1. HUMIRA [Suspect]
     Indication: CROHN'S DISEASE
     Route: 058
     Dates: start: 20111005, end: 20111019
  2. ORAMORPH SR [Concomitant]
     Indication: PAIN
     Dosage: CUMULATIVE DOSE TO 1ST REACTION: 11300 MG
     Route: 048
     Dates: start: 20110707, end: 20111025
  3. DIAZEPAM TAB [Concomitant]
     Indication: ANXIETY
     Route: 048
     Dates: start: 20111019
  4. ADCAL D3 [Concomitant]
     Indication: CROHN'S DISEASE
     Dosage: CUMULATIVE DOSE TO 1ST REACTION: 162 DF
     Route: 048
     Dates: start: 20110808
  5. LANSOPRAZOLE [Concomitant]
     Indication: GASTRITIS
     Dosage: CUMULATIVE DOSE TO 1ST REACTION: 270 MG
     Route: 048
     Dates: start: 20111019
  6. VENTOLIN [Concomitant]
     Indication: PRODUCT USED FOR UNKNOWN INDICATION
  7. CLARITHROMYCIN [Interacting]
     Indication: LOWER RESPIRATORY TRACT INFECTION
     Dosage: CUMULATIVE DOSE TO 1ST REACTION: 1000 MG
     Route: 048
     Dates: start: 20111027, end: 20111030
  8. ORAMORPH SR [Concomitant]
     Indication: CROHN'S DISEASE
  9. MULTI-VITAMIN [Concomitant]
     Indication: PRODUCT USED FOR UNKNOWN INDICATION
     Dosage: VITAMIN BPC
  10. CLARITHROMYCIN [Interacting]
     Indication: UPPER RESPIRATORY TRACT INFECTION
  11. METHADON HYDROCHLORIDE TAB [Interacting]
     Indication: PAIN MANAGEMENT
     Dosage: 1:1 STRENGTH BUT AT A 10% REDUCTION OF THE ORAMORPH
     Route: 048
     Dates: start: 20111025, end: 20111030
  12. METHADON HYDROCHLORIDE TAB [Interacting]
     Route: 048
     Dates: start: 20111027, end: 20111028
  13. METHADON HYDROCHLORIDE TAB [Interacting]
     Route: 048
     Dates: start: 20111028, end: 20111030
  14. ORAMORPH SR [Concomitant]
     Indication: ANALGESIC THERAPY

REACTIONS (32)
  - DYSARTHRIA [None]
  - HEART RATE INCREASED [None]
  - HYPERHIDROSIS [None]
  - ERYTHEMA [None]
  - DIZZINESS [None]
  - OROPHARYNGEAL PAIN [None]
  - HICCUPS [None]
  - WHITE BLOOD CELL COUNT INCREASED [None]
  - BLOOD URINE PRESENT [None]
  - SOMNOLENCE [None]
  - VISION BLURRED [None]
  - DIPLOPIA [None]
  - VOMITING [None]
  - DYSURIA [None]
  - PNEUMONITIS [None]
  - INFLUENZA [None]
  - PAIN [None]
  - TOXICITY TO VARIOUS AGENTS [None]
  - MALAISE [None]
  - PHARYNGEAL ERYTHEMA [None]
  - TREMOR [None]
  - RECTAL HAEMORRHAGE [None]
  - CROHN'S DISEASE [None]
  - CHEST PAIN [None]
  - INFECTION [None]
  - VIRAL INFECTION [None]
  - INHIBITORY DRUG INTERACTION [None]
  - OVERDOSE [None]
  - DIFFUSE ALVEOLAR DAMAGE [None]
  - HEADACHE [None]
  - C-REACTIVE PROTEIN INCREASED [None]
  - DRUG LEVEL ABOVE THERAPEUTIC [None]
